FAERS Safety Report 7461573-8 (Version None)
Quarter: 2011Q2

REPORT INFORMATION
  Report Type: 
  Country: None (occurrence: None)
  Receive Date: 20110428
  Receipt Date: 20110412
  Transmission Date: 20111010
  Serious: Yes (Hospitalization)
  Sender: FDA-Public Use
  Company Number: JPI-P-014570

PATIENT
  Age: 44 Year
  Sex: Female
  Weight: 56.246 kg

DRUGS (6)
  1. MORPHINE SULFATE [Concomitant]
  2. XYREM [Suspect]
     Indication: CATAPLEXY
     Dosage: SEE IMAGE
     Route: 048
     Dates: start: 20100526
  3. XYREM [Suspect]
     Indication: CATAPLEXY
     Dosage: SEE IMAGE
     Route: 048
     Dates: end: 20110403
  4. XYREM [Suspect]
     Indication: CATAPLEXY
     Dosage: SEE IMAGE
     Route: 048
     Dates: start: 20110410, end: 20110411
  5. XYREM [Suspect]
     Indication: CATAPLEXY
     Dosage: SEE IMAGE
     Route: 048
     Dates: start: 20110405, end: 20110407
  6. FLUOXETINE [Concomitant]

REACTIONS (9)
  - LOSS OF CONSCIOUSNESS [None]
  - HEAD INJURY [None]
  - DISSOCIATION [None]
  - INSOMNIA [None]
  - HYPERHIDROSIS [None]
  - ELECTROCARDIOGRAM QT INTERVAL ABNORMAL [None]
  - MENSTRUATION IRREGULAR [None]
  - ARRHYTHMIA [None]
  - MENOPAUSE [None]
